FAERS Safety Report 6955060-0 (Version None)
Quarter: 2010Q3

REPORT INFORMATION
  Report Type: 
  Country: None (occurrence: None)
  Receive Date: 20100825
  Receipt Date: 20100810
  Transmission Date: 20110219
  Serious: Yes (Other)
  Sender: FDA-Public Use
  Company Number: JPI-P-011840

PATIENT
  Sex: Female

DRUGS (1)
  1. XYREM [Suspect]
     Indication: APNOEA
     Dosage: 6 GM (3 GM,2 IN 1 D), ORAL
     Route: 048
     Dates: start: 20060822

REACTIONS (4)
  - ADRENAL INSUFFICIENCY [None]
  - ALOPECIA [None]
  - APNOEA [None]
  - HYPOPITUITARISM [None]
